FAERS Safety Report 13454749 (Version 3)
Quarter: 2020Q1

REPORT INFORMATION
  Report Type: Report from Study
  Country: US (occurrence: US)
  Receive Date: 20170418
  Receipt Date: 20200311
  Transmission Date: 20200409
  Serious: No
  Sender: FDA-Public Use
  Company Number: PHEH2017US011288

PATIENT
  Age: 50 Year
  Sex: Female
  Weight: 62.14 kg

DRUGS (2)
  1. GILENYA [Suspect]
     Active Substance: FINGOLIMOD HYDROCHLORIDE
     Indication: MULTIPLE SCLEROSIS
     Dosage: 0.5 MG, QD
     Route: 048
     Dates: start: 20170131
  2. GILENYA [Suspect]
     Active Substance: FINGOLIMOD HYDROCHLORIDE
     Dosage: 0.5 MG, QD
     Route: 048
     Dates: start: 20170412

REACTIONS (9)
  - Limb discomfort [Recovering/Resolving]
  - Fatigue [Not Recovered/Not Resolved]
  - Dry eye [Not Recovered/Not Resolved]
  - Headache [Recovering/Resolving]
  - Muscle twitching [Recovering/Resolving]
  - Heart rate decreased [Unknown]
  - Back pain [Recovered/Resolved]
  - Dry mouth [Not Recovered/Not Resolved]
  - Product dose omission [Not Recovered/Not Resolved]

NARRATIVE: CASE EVENT DATE: 20170412
